FAERS Safety Report 5145259-0 (Version None)
Quarter: 2006Q4

REPORT INFORMATION
  Report Type: 
  Country: None (occurrence: None)
  Receive Date: 20060912
  Receipt Date: 20060519
  Transmission Date: 20070319
  Serious: Yes (Hospitalization)
  Sender: FDA-Public Use
  Company Number: 2006-BP-05009BP

PATIENT
  Age: 29 Year
  Sex: Male
  Weight: 59.09 kg

DRUGS (2)
  1. VIRAMUNE [Suspect]
     Indication: HIV INFECTION
     Dosage: 200 MG (200 MG),PO
     Route: 048
     Dates: start: 20060410, end: 20060415
  2. TRUVADA [Concomitant]

REACTIONS (1)
  - HYPERSENSITIVITY [None]
